FAERS Safety Report 21034328 (Version 1)
Quarter: 2022Q3

REPORT INFORMATION
  Report Type: Spontaneous
  Country: IT (occurrence: IT)
  Receive Date: 20220701
  Receipt Date: 20220701
  Transmission Date: 20221026
  Serious: Yes (Hospitalization)
  Sender: FDA-Public Use
  Company Number: None

PATIENT
  Age: 74 Year
  Sex: Female

DRUGS (1)
  1. FLUOROURACIL [Suspect]
     Active Substance: FLUOROURACIL
     Indication: Pancreatic carcinoma metastatic
     Dosage: UNIT DOSE: 2800 MG, FREQUENCY TIME : 1 CYCLICAL, DURATION : 2 DAYS, SOLUTION FOR INFUSION IN ADMINIS
     Route: 042
     Dates: start: 20220523, end: 20220525

REACTIONS (3)
  - Neutropenia [Recovering/Resolving]
  - Thrombocytopenia [Recovering/Resolving]
  - Mucosal inflammation [Recovering/Resolving]
